FAERS Safety Report 23290748 (Version 1)
Quarter: 2023Q4

REPORT INFORMATION
  Report Type: Spontaneous
  Country: US (occurrence: US)
  Receive Date: 20231213
  Receipt Date: 20231213
  Transmission Date: 20240110
  Serious: No
  Sender: FDA-Public Use
  Company Number: US-ALVOGEN-2023092559

PATIENT
  Sex: Male

DRUGS (1)
  1. LISDEXAMFETAMINE [Suspect]
     Active Substance: LISDEXAMFETAMINE
     Indication: Product used for unknown indication
     Dosage: STRENGTH: 20MG?DISCARD DATE: 31-OCT-2024?EXPIRATION DATE: UU-OCT-2024
     Route: 048

REACTIONS (3)
  - Emotional disorder [Unknown]
  - Therapeutic response shortened [Unknown]
  - Product packaging quantity issue [Unknown]
